FAERS Safety Report 15700507 (Version 1)
Quarter: 2018Q4

REPORT INFORMATION
  Report Type: Spontaneous
  Country: GB (occurrence: GB)
  Receive Date: 20181207
  Receipt Date: 20181207
  Transmission Date: 20190205
  Serious: Yes (Other)
  Sender: FDA-Public Use
  Company Number: GB-SEPTODONT-201804900

PATIENT
  Sex: Male

DRUGS (6)
  1. LACOSAMIDE. [Concomitant]
     Active Substance: LACOSAMIDE
  2. WARFARIN [Concomitant]
     Active Substance: WARFARIN
  3. ZONEGRAN [Concomitant]
     Active Substance: ZONISAMIDE
  4. ARTICAINE HYDROCHLORIDE WITH ADRENALINE [Suspect]
     Active Substance: ARTICAINE\EPINEPHRINE
     Indication: DENTAL LOCAL ANAESTHESIA
     Route: 004
  5. CLOBAZAM. [Concomitant]
     Active Substance: CLOBAZAM
  6. ARTICAINE HYDROCHLORIDE WITH ADRENALINE [Suspect]
     Active Substance: ARTICAINE\EPINEPHRINE
     Indication: DENTAL LOCAL ANAESTHESIA
     Route: 004

REACTIONS (1)
  - Epilepsy [Recovered/Resolved]

NARRATIVE: CASE EVENT DATE: 20180412
